FAERS Safety Report 7688658-5 (Version None)
Quarter: 2011Q3

REPORT INFORMATION
  Report Type: 
  Country: None (occurrence: None)
  Receive Date: 20110817
  Receipt Date: 20110727
  Transmission Date: 20111222
  Serious: Yes (Death, Hospitalization)
  Sender: FDA-Public Use
  Company Number: US-GLAXOSMITHKLINE-A0839461A

PATIENT
  Age: 72 Year
  Sex: Male
  Weight: 115.5 kg

DRUGS (28)
  1. TRAMADOL HCL [Concomitant]
  2. COUMADIN [Concomitant]
  3. RESTORIL [Concomitant]
  4. FLOMAX [Concomitant]
  5. POTASSIUM CHLORIDE [Concomitant]
  6. ALDACTONE [Concomitant]
  7. SPIRIVA [Concomitant]
  8. POTASSIUM CHLORIDE [Concomitant]
  9. GLIPIZIDE [Concomitant]
  10. ISORDIL [Concomitant]
  11. ATROVENT [Concomitant]
  12. LASIX [Concomitant]
  13. HYDROCODONE [Concomitant]
  14. LISINOPRIL [Concomitant]
  15. COREG [Concomitant]
  16. CRESTOR [Concomitant]
  17. AVANDIA [Suspect]
     Indication: DIABETES MELLITUS
     Dosage: 4MG UNKNOWN
     Route: 048
     Dates: start: 20050401, end: 20070501
  18. CLONIDINE [Concomitant]
  19. PRINIVIL [Concomitant]
  20. ADVAIR DISKUS 100/50 [Concomitant]
  21. NORVASC [Concomitant]
  22. DIABETA [Concomitant]
  23. ASPIRIN [Concomitant]
  24. ALPRAZOLAM [Concomitant]
  25. BUMETANIDE [Concomitant]
  26. PRILOSEC [Concomitant]
  27. CATAPRES [Concomitant]
  28. XOPENEX [Concomitant]

REACTIONS (3)
  - ATRIAL FIBRILLATION [None]
  - CARDIAC FAILURE CONGESTIVE [None]
  - MYOCARDIAL INFARCTION [None]
